FAERS Safety Report 6106154-3 (Version None)
Quarter: 2009Q1

REPORT INFORMATION
  Report Type: 
  Country: None (occurrence: None)
  Receive Date: 20090306
  Receipt Date: 20090304
  Transmission Date: 20090719
  Serious: Yes (Death, Life-Threatening, Other)
  Sender: FDA-Public Use
  Company Number: PHBS2008JP06724

PATIENT
  Sex: Female
  Weight: 47 kg

DRUGS (13)
  1. NEORAL [Suspect]
     Indication: DERMATOMYOSITIS
     Dosage: 100 MG/DAY
     Route: 048
     Dates: start: 20070503, end: 20070503
  2. NEORAL [Suspect]
     Dosage: 200 MG/DAY
     Route: 048
     Dates: start: 20070504, end: 20070525
  3. METHYLPREDNISOLONE 4MG TAB [Suspect]
     Dosage: 1000 MG/DAY
     Route: 042
  4. PREDNISONE [Suspect]
     Indication: DERMATOMYOSITIS
     Dosage: 50 MG/DAY
     Route: 048
     Dates: start: 20070505, end: 20070511
  5. CYCLOPHOSPHAMIDE [Suspect]
     Dosage: 500 MG, BIW
  6. DALTEPARIN SODIUM [Suspect]
     Dosage: 75 IU/KG/DAY
  7. RED BLOOD CELLS [Concomitant]
     Dosage: 3 IU
  8. SOL MEDROL [Concomitant]
     Indication: DERMATOMYOSITIS
     Dosage: 1000 MG
     Route: 042
     Dates: start: 20070502, end: 20070521
  9. ENDOXAN [Concomitant]
     Indication: DERMATOMYOSITIS
     Dosage: 500 MG
     Route: 042
     Dates: start: 20070503, end: 20070527
  10. ENDOXAN [Concomitant]
     Dosage: 500 MG
     Route: 042
  11. ENDOXAN [Concomitant]
     Dosage: 500 MG
     Route: 042
  12. PREDONINE [Concomitant]
     Indication: DERMATOMYOSITIS
     Dosage: 100 MG
     Route: 042
     Dates: start: 20070512, end: 20070527
  13. BAKTAR [Concomitant]
     Dosage: 1DF
     Route: 048
     Dates: start: 20070503, end: 20070517

REACTIONS (18)
  - ABDOMINAL PAIN LOWER [None]
  - ANEURYSM [None]
  - CONDITION AGGRAVATED [None]
  - EYE MOVEMENT DISORDER [None]
  - HAEMOGLOBIN DECREASED [None]
  - INTERSTITIAL LUNG DISEASE [None]
  - INTRA-ABDOMINAL HAEMATOMA [None]
  - MEDIASTINAL HAEMORRHAGE [None]
  - MULTI-ORGAN FAILURE [None]
  - MUSCLE HAEMORRHAGE [None]
  - MYOSITIS [None]
  - RESPIRATORY FAILURE [None]
  - RETROPERITONEAL HAEMATOMA [None]
  - REVERSIBLE POSTERIOR LEUKOENCEPHALOPATHY SYNDROME [None]
  - THERAPEUTIC EMBOLISATION [None]
  - THROMBOTIC THROMBOCYTOPENIC PURPURA [None]
  - TONIC CONVULSION [None]
  - TOXIC ENCEPHALOPATHY [None]
